FAERS Safety Report 5213878-9 (Version None)
Quarter: 2007Q1

REPORT INFORMATION
  Report Type: 
  Country: None (occurrence: None)
  Receive Date: 20070117
  Receipt Date: 20070102
  Transmission Date: 20070707
  Serious: Yes (Other)
  Sender: FDA-Public Use
  Company Number: PAR_1216_2007

PATIENT
  Age: 28 Year
  Sex: Male

DRUGS (2)
  1. IBUPROFEN [Suspect]
     Dosage: 800 MG QDAY PO
     Route: 048
     Dates: start: 20070102
  2. BAYER GENUINE ASPIRIN [Suspect]
     Indication: ARTHRALGIA
     Dosage: 1950 MG ONCE PO
     Route: 048
     Dates: start: 20070102

REACTIONS (3)
  - EXTRASYSTOLES [None]
  - HEART RATE INCREASED [None]
  - TREATMENT NONCOMPLIANCE [None]
